FAERS Safety Report 13111300 (Version 2)
Quarter: 2017Q1

REPORT INFORMATION
  Report Type: Spontaneous
  Country: US (occurrence: US)
  Receive Date: 20170112
  Receipt Date: 20170313
  Transmission Date: 20170428
  Serious: Yes (Other)
  Sender: FDA-Public Use
  Company Number: US-PFIZER INC-2017009005

PATIENT
  Age: 43 Year
  Sex: Male

DRUGS (1)
  1. BENEFIX [Suspect]
     Active Substance: COAGULATION FACTOR IX RECOMBINANT HUMAN\ISOPROPYL ALCOHOL
     Indication: FACTOR IX DEFICIENCY
     Dosage: 8000 IU, AS NEEDED (TWICE A WEEK AND PRN BLEEDING)

REACTIONS (4)
  - Pneumonia [Unknown]
  - Liver disorder [Unknown]
  - Feeling abnormal [Unknown]
  - Fatigue [Unknown]
